FAERS Safety Report 8227828-4 (Version None)
Quarter: 2012Q1

REPORT INFORMATION
  Report Type: 
  Country: None (occurrence: None)
  Receive Date: 20120322
  Receipt Date: 20120319
  Transmission Date: 20120608
  Serious: Yes (Hospitalization)
  Sender: FDA-Public Use
  Company Number: US-BAYER-201024988NA

PATIENT
  Age: 25 Year
  Sex: Female
  Weight: 61.678 kg

DRUGS (7)
  1. ALBUTEROL [Concomitant]
     Route: 055
  2. HYOSCYAMINE [Concomitant]
     Dosage: 0.125 MG, PRN
  3. DRUGS FOR FUNCTIONAL GASTROINTEST. DISORDERS [Concomitant]
  4. METABOLIFE [Concomitant]
     Dosage: UNK UNK, TID
  5. YASMIN [Suspect]
     Indication: CONTRACEPTION
     Dosage: UNK
     Route: 048
     Dates: start: 20040101, end: 20080101
  6. VITAMIN E [Concomitant]
  7. YAZ [Suspect]
     Indication: CONTRACEPTION
     Dosage: UNK
     Dates: start: 20060101, end: 20080101

REACTIONS (2)
  - PULMONARY EMBOLISM [None]
  - HAEMOPTYSIS [None]
